FAERS Safety Report 6122121-8 (Version None)
Quarter: 2009Q1

REPORT INFORMATION
  Report Type: 
  Country: None (occurrence: None)
  Receive Date: 20090316
  Receipt Date: 20090316
  Transmission Date: 20090719
  Serious: Yes (Other)
  Sender: FDA-Public Use
  Company Number: None

PATIENT
  Age: 57 Year
  Sex: Male
  Weight: 80.7403 kg

DRUGS (2)
  1. JANUVIA [Suspect]
     Indication: BLOOD GLUCOSE INCREASED
     Dosage: 1 TABLET 1 X PER DAY PO
     Route: 048
  2. CITALOPRAM 20 MG DR. REDDY'S NDC 55111-0313-05 [Suspect]
     Indication: DEPRESSION
     Dosage: 1 TABLET 1 X PER DAY PO
     Route: 048

REACTIONS (5)
  - DRY EYE [None]
  - EYE IRRITATION [None]
  - NO THERAPEUTIC RESPONSE [None]
  - SENSATION OF FOREIGN BODY [None]
  - VISION BLURRED [None]
